FAERS Safety Report 6326034-8 (Version None)
Quarter: 2009Q3

REPORT INFORMATION
  Report Type: 
  Country: None (occurrence: None)
  Receive Date: 20090824
  Receipt Date: 20090814
  Transmission Date: 20100115
  Serious: Yes (Life-Threatening, Hospitalization)
  Sender: FDA-Public Use
  Company Number: US-ROCHE-651484

PATIENT
  Age: 57 Year
  Sex: Male

DRUGS (4)
  1. MYCOPHENOLATE MOFETIL [Suspect]
     Indication: CHRONIC GRAFT VERSUS HOST DISEASE
     Route: 048
  2. PREDNISONE TAB [Suspect]
     Indication: CHRONIC GRAFT VERSUS HOST DISEASE
     Route: 048
  3. PREDNISONE TAB [Suspect]
     Route: 048
  4. CALCINEURIN INHIBITOR NOS [Suspect]
     Indication: CHRONIC GRAFT VERSUS HOST DISEASE
     Route: 048

REACTIONS (3)
  - PNEUMONIA PARAINFLUENZAE VIRAL [None]
  - PNEUMOTHORAX [None]
  - PYREXIA [None]
